FAERS Safety Report 20938235 (Version 1)
Quarter: 2022Q2

REPORT INFORMATION
  Report Type: Spontaneous
  Country: US (occurrence: US)
  Receive Date: 20220609
  Receipt Date: 20220609
  Transmission Date: 20220721
  Serious: No
  Sender: FDA-Public Use
  Company Number: US-PFIZER INC-202200804413

PATIENT
  Age: 60 Year
  Sex: Female

DRUGS (23)
  1. PAXLOVID [Suspect]
     Active Substance: NIRMATRELVIR\RITONAVIR
     Indication: COVID-19 treatment
     Dosage: UNK
     Dates: start: 20220521, end: 20220525
  2. SUPRAX [Concomitant]
     Active Substance: CEFIXIME
     Dosage: UNK
     Dates: start: 20220510, end: 20220523
  3. BUTRANS [Concomitant]
     Active Substance: BUPRENORPHINE
     Dosage: 10 UG (PATCH)
     Dates: start: 20220418
  4. SKELAXIN [Concomitant]
     Active Substance: METAXALONE
     Dosage: UNK
  5. TOPIRAMATE [Concomitant]
     Active Substance: TOPIRAMATE
     Dosage: UNK
  6. KIRKLAND SIGNATURE LAXACLEAR ORIGINAL PRESCRIPTION STRENGTH [Concomitant]
     Active Substance: POLYETHYLENE GLYCOL 3350
     Dosage: UNK
  7. PATANASE [Concomitant]
     Active Substance: OLOPATADINE HYDROCHLORIDE
     Dosage: UNK
  8. SINGULAIR [Concomitant]
     Active Substance: MONTELUKAST SODIUM
     Dosage: 10 MG
  9. FLONASE [Concomitant]
     Active Substance: FLUTICASONE PROPIONATE
     Dosage: UNK
  10. PEPCID AC [Concomitant]
     Active Substance: FAMOTIDINE
     Dosage: 40 MG
  11. CLARINEX [Concomitant]
     Active Substance: DESLORATADINE
     Dosage: 5 MG
  12. ALIGN [Concomitant]
     Active Substance: BIFIDOBACTERIUM LONGUM SUBSP. INFANTIS
     Dosage: UNK
  13. CAPE ALOE [Concomitant]
     Dosage: UNK
  14. VITAMIN C [Concomitant]
     Active Substance: ASCORBIC ACID
     Dosage: 500 MG
  15. VITAMIN B7 [Concomitant]
     Dosage: 10 MG
  16. VITAMIN D NOS [Concomitant]
     Active Substance: VITAMIN D NOS
     Dosage: 25 UG
  17. CARLSON VITAMIN D3 [Concomitant]
     Dosage: UNK (COL LIVER OIL 280 MG OMEGA 3S MINIS)
  18. UNSPECIFIED INGREDIENT [Concomitant]
     Active Substance: UNSPECIFIED INGREDIENT
     Dosage: UNK
  19. DOCUSATE SODIUM [Concomitant]
     Active Substance: DOCUSATE SODIUM
     Dosage: 100 MG
  20. NIACINAMIDE [Concomitant]
     Active Substance: NIACINAMIDE
     Dosage: 500 MG
  21. MAGNESIUM OXIDE [Concomitant]
     Active Substance: MAGNESIUM OXIDE
     Dosage: 400 MG
  22. LEVOMEFOLATE CALCIUM [Concomitant]
     Active Substance: LEVOMEFOLATE CALCIUM
     Dosage: 1000 UG
  23. BONE UP [Concomitant]

REACTIONS (2)
  - COVID-19 [Unknown]
  - Disease recurrence [Unknown]

NARRATIVE: CASE EVENT DATE: 20220603
